FAERS Safety Report 25920597 (Version 2)
Quarter: 2025Q4

REPORT INFORMATION
  Report Type: Report from Study
  Country: US (occurrence: US)
  Receive Date: 20251014
  Receipt Date: 20251017
  Transmission Date: 20260117
  Serious: Yes (Other)
  Sender: ROCHE
  Company Number: US-ROCHE-10000410838

PATIENT
  Sex: Male

DRUGS (2)
  1. MYCOPHENOLATE MOFETIL [Suspect]
     Active Substance: MYCOPHENOLATE MOFETIL
     Indication: Lung transplant
     Dosage: ^TAKE 1 CAPSULE MONDAY, WEDNESDAY, FRIDAY
     Route: 048
     Dates: start: 20251013
  2. MYCOPHENOLATE MOFETIL [Suspect]
     Active Substance: MYCOPHENOLATE MOFETIL
     Dosage: ^TAKE 1 CAPSULE MONDAY, WEDNESDAY, FRIDAY
     Route: 048
     Dates: start: 20251015

REACTIONS (2)
  - Skin cancer [Unknown]
  - Off label use [Unknown]
